FAERS Safety Report 7827802-3 (Version None)
Quarter: 2011Q4

REPORT INFORMATION
  Report Type: 
  Country: None (occurrence: None)
  Receive Date: 20111019
  Receipt Date: 20111019
  Transmission Date: 20120403
  Serious: Yes (Other)
  Sender: FDA-Public Use
  Company Number: None

PATIENT
  Sex: Female
  Weight: 65.7716 kg

DRUGS (2)
  1. LAMOTRIGINE [Suspect]
     Indication: CONVULSION
     Dates: start: 20110401
  2. TOPIRAMATE [Suspect]
     Indication: CONVULSION
     Dates: start: 20110401

REACTIONS (6)
  - DIZZINESS [None]
  - DISORIENTATION [None]
  - DIPLOPIA [None]
  - ASTHENIA [None]
  - BALANCE DISORDER [None]
  - VISION BLURRED [None]
